FAERS Safety Report 10460995 (Version 1)
Quarter: 2014Q3

REPORT INFORMATION
  Report Type: Spontaneous
  Country: US (occurrence: None)
  Receive Date: 20140917
  Receipt Date: 20140917
  Transmission Date: 20150326
  Serious: Yes (Disabling)
  Sender: FDA-Public Use
  Company Number: None

PATIENT
  Age: 20 Year
  Sex: Male
  Weight: 81.65 kg

DRUGS (1)
  1. PHENOBARBITAL. [Suspect]
     Active Substance: PHENOBARBITAL
     Indication: FEBRILE CONVULSION
     Dosage: 2 TESP., TWICE DAILY, TAKEN BY MOUTH
     Route: 048
     Dates: start: 19950614

REACTIONS (2)
  - Gynaecomastia [None]
  - Learning disorder [None]

NARRATIVE: CASE EVENT DATE: 20140722
